FAERS Safety Report 23699708 (Version 1)
Quarter: 2024Q2

REPORT INFORMATION
  Report Type: Spontaneous
  Country: AU (occurrence: AU)
  Receive Date: 20240403
  Receipt Date: 20240403
  Transmission Date: 20240715
  Serious: Yes (Other)
  Sender: FDA-Public Use
  Company Number: AU-AMGEN-AUSSP2024062740

PATIENT
  Age: 48 Year
  Sex: Female

DRUGS (3)
  1. TRASTUZUMAB [Suspect]
     Active Substance: TRASTUZUMAB
     Indication: Invasive breast carcinoma
     Dosage: UNK  (2 CYCLES)
     Route: 065
  2. PACLITAXEL [Concomitant]
     Active Substance: PACLITAXEL
     Indication: Invasive breast carcinoma
     Dosage: UNK (12 CYCLES)
     Route: 065
  3. COVID-19 vaccine [Concomitant]
     Dosage: UNK (2 DOSES)
     Route: 065
     Dates: start: 202109

REACTIONS (2)
  - Myocarditis [Recovering/Resolving]
  - COVID-19 [Recovered/Resolved]
